FAERS Safety Report 14503739 (Version 1)
Quarter: 2018Q1

REPORT INFORMATION
  Report Type: Spontaneous
  Country: JP (occurrence: JP)
  Receive Date: 20180208
  Receipt Date: 20180208
  Transmission Date: 20180509
  Serious: Yes (Other)
  Sender: FDA-Public Use
  Company Number: JP-GLAXOSMITHKLINE-JP2018JPN019513

PATIENT
  Age: 80 Year
  Sex: Female

DRUGS (2)
  1. FLUTIDE [Suspect]
     Active Substance: FLUTICASONE PROPIONATE
     Dosage: 50 ?G, QD
     Route: 055
  2. FLUTIDE [Suspect]
     Active Substance: FLUTICASONE PROPIONATE
     Indication: ASTHMA
     Dosage: 50 ?G, BID
     Route: 055
     Dates: start: 20170101

REACTIONS (3)
  - Dysphonia [Recovered/Resolved]
  - Arrhythmia [Recovering/Resolving]
  - Intentional product misuse [Unknown]

NARRATIVE: CASE EVENT DATE: 2017
